FAERS Safety Report 6754642-9 (Version None)
Quarter: 2010Q2

REPORT INFORMATION
  Report Type: 
  Country: None (occurrence: None)
  Receive Date: 20100603
  Receipt Date: 20100525
  Transmission Date: 20101027
  Serious: Yes (Other)
  Sender: FDA-Public Use
  Company Number: JP-WYE-H15438010

PATIENT
  Age: 65 Year
  Sex: Male

DRUGS (4)
  1. ANCARON [Suspect]
     Indication: ATRIAL FIBRILLATION
     Route: 048
     Dates: start: 20100420, end: 20100426
  2. ARTIST [Concomitant]
  3. ALDACTONE [Concomitant]
  4. CAPTOPRIL [Concomitant]

REACTIONS (1)
  - HYPERNATRAEMIA [None]
